FAERS Safety Report 8694588 (Version 2)
Quarter: 2012Q4

REPORT INFORMATION
  Report Type: Report from Study
  Country: BE (occurrence: BE)
  Receive Date: 20120731
  Receipt Date: 20120920
  Transmission Date: 20130627
  Serious: Yes (Hospitalization)
  Sender: FDA-Public Use
  Company Number: BE-PFIZER INC-2012181521

PATIENT
  Age: 58 Year
  Sex: Male
  Weight: 86 kg

DRUGS (7)
  1. GENOTROPIN [Suspect]
     Indication: HYPOPITUITARISM
     Dosage: 0.4 mg,  7/wk
     Route: 058
     Dates: start: 20031212
  2. LEVOTHYROXINE SODIUM [Concomitant]
     Indication: BLOOD THYROID STIMULATING HORMONE
     Dosage: UNK
     Dates: start: 19820715
  3. SUSTANON [Concomitant]
     Indication: BLOOD LUTEINISING HORMONE
     Dosage: UNK
     Dates: start: 19820715
  4. SUSTANON [Concomitant]
     Indication: BLOOD FOLLICLE STIMULATING HORMONE
  5. PARLODEL [Concomitant]
     Indication: HYPERPROLACTINAEMIA
     Dosage: UNK
     Dates: start: 20020715
  6. HYDROCORTISONE [Concomitant]
     Indication: BLOOD CORTICOTROPHIN
     Dosage: UNK
     Dates: start: 20020715
  7. PRAZEPAM [Concomitant]
     Indication: ANXIETY
     Dosage: UNK
     Dates: start: 20070104

REACTIONS (2)
  - Depression [Recovered/Resolved]
  - Pulmonary embolism [Unknown]
